FAERS Safety Report 9659151 (Version 2)
Quarter: 2013Q4

REPORT INFORMATION
  Report Type: Spontaneous
  Country: US (occurrence: US)
  Receive Date: 20131031
  Receipt Date: 20131202
  Transmission Date: 20140711
  Serious: No
  Sender: FDA-Public Use
  Company Number: US-B.I. PHARMACEUTICALS,INC./RIDGEFIELD-2013-BI-33570BP

PATIENT
  Age: 60 Year
  Sex: Male
  Weight: 157.3 kg

DRUGS (5)
  1. MICARDIS HCT TABLETS [Suspect]
     Indication: HYPERTENSION
     Dosage: STRENGTH: 80 MG / 12.5 MG; DAILY DOSE: 80 MG/ 12.5 MG
     Route: 048
     Dates: end: 201310
  2. ALEVE [Concomitant]
     Route: 048
  3. AMLODIPINE [Concomitant]
     Indication: HYPERTENSION
     Dosage: 10 MG
     Dates: start: 20131029
  4. CHANTIX [Concomitant]
     Indication: NICOTINE DEPENDENCE
     Dosage: 1 MG
     Dates: start: 20131015
  5. VERAMYST NS [Concomitant]
     Indication: NASAL POLYPS
     Dosage: FORMULATION: SPRAY
     Dates: start: 20131001

REACTIONS (2)
  - Renal impairment [Unknown]
  - Joint swelling [Recovered/Resolved]
